FAERS Safety Report 18690838 (Version 2)
Quarter: 2021Q1

REPORT INFORMATION
  Report Type: Report from Study
  Country: RU (occurrence: RU)
  Receive Date: 20210101
  Receipt Date: 20210126
  Transmission Date: 20210419
  Serious: Yes (Death)
  Sender: FDA-Public Use
  Company Number: RU-ROCHE-2742066

PATIENT
  Age: 59 Year
  Sex: Male
  Weight: 71 kg

DRUGS (2)
  1. CABOZANTINIB [Suspect]
     Active Substance: CABOZANTINIB
     Indication: RENAL CELL CARCINOMA
     Dosage: ON 27/DEC/2020, HE RECEIVED MOST RECENT DOSE OF CABOZANTINIB PRIOR TO AE/SAE
     Route: 048
     Dates: start: 20200910
  2. ATEZOLIZUMAB. [Suspect]
     Active Substance: ATEZOLIZUMAB
     Indication: RENAL CELL CARCINOMA
     Dosage: ON 24/DEC/2020, HE RECEIVED HIS MOST RECENT DOSE OF ATEZOLIZUMAB PRIOR TO AE/SAE.
     Route: 042
     Dates: start: 20200910

REACTIONS (1)
  - Pulmonary haemorrhage [Fatal]

NARRATIVE: CASE EVENT DATE: 20201228
